FAERS Safety Report 4615804-X (Version None)
Quarter: 2005Q2

REPORT INFORMATION
  Report Type: 
  Country: None (occurrence: None)
  Receive Date: 20050304
  Receipt Date: 20041013
  Transmission Date: 20051028
  Serious: Yes (Hospitalization)
  Sender: FDA-Public Use
  Company Number: F(LIT)16/1104

PATIENT
  Age: 63 Year
  Sex: Female

DRUGS (1)
  1. OMEPRAZOLE [Suspect]
     Indication: ABDOMINAL PAIN UPPER
     Dosage: 20 MG DAILY, ORAL
     Route: 048

REACTIONS (1)
  - NEPHRITIS INTERSTITIAL [None]
